FAERS Safety Report 22324946 (Version 1)
Quarter: 2023Q2

REPORT INFORMATION
  Report Type: Spontaneous
  Country: US (occurrence: US)
  Receive Date: 20230516
  Receipt Date: 20230516
  Transmission Date: 20230721
  Serious: No
  Sender: FDA-Public Use
  Company Number: US-PFIZER INC-202300190230

PATIENT
  Age: 57 Year
  Sex: Female
  Weight: 90.72 kg

DRUGS (1)
  1. PAXLOVID [Suspect]
     Active Substance: NIRMATRELVIR\RITONAVIR
     Indication: COVID-19
     Dosage: 150 AND 100MG PACK, 1 DOSE IN THE MORNING AND 1 DOSE AT NIGHT
     Route: 048
     Dates: start: 20230510, end: 20230512

REACTIONS (2)
  - Migraine [Recovering/Resolving]
  - Disease recurrence [Recovering/Resolving]
